FAERS Safety Report 8449661-0 (Version None)
Quarter: 2012Q2

REPORT INFORMATION
  Report Type: 
  Country: None (occurrence: None)
  Receive Date: 20120620
  Receipt Date: 20120608
  Transmission Date: 20120825
  Serious: Yes (Hospitalization, Other)
  Sender: FDA-Public Use
  Company Number: US-SHIRE-ALL1-2012-02948

PATIENT
  Sex: Female
  Weight: 15.42 kg

DRUGS (1)
  1. VYVANSE [Suspect]
     Indication: ATTENTION DEFICIT/HYPERACTIVITY DISORDER
     Dosage: 20 MG, 1X/DAY:QD
     Route: 048
     Dates: start: 20120607, end: 20120607

REACTIONS (15)
  - BRUXISM [None]
  - AFFECT LABILITY [None]
  - HEADACHE [None]
  - PARANOIA [None]
  - NECK PAIN [None]
  - HEART RATE INCREASED [None]
  - EAR PAIN [None]
  - CHILLS [None]
  - INSOMNIA [None]
  - DIZZINESS [None]
  - DECREASED APPETITE [None]
  - HALLUCINATIONS, MIXED [None]
  - OFF LABEL USE [None]
  - OVERDOSE [None]
  - ABDOMINAL PAIN UPPER [None]
